FAERS Safety Report 11549648 (Version 1)
Quarter: 2015Q3

REPORT INFORMATION
  Report Type: Spontaneous
  Country: US (occurrence: US)
  Receive Date: 20150924
  Receipt Date: 20150924
  Transmission Date: 20151125
  Serious: No
  Sender: FDA-Public Use
  Company Number: US-INCYTE CORPORATION-2015IN003614

PATIENT
  Age: 63 Year
  Sex: Female

DRUGS (2)
  1. JAKAFI [Suspect]
     Active Substance: RUXOLITINIB
     Indication: MYELOFIBROSIS
     Dosage: 20 MG, BID
     Route: 048
     Dates: start: 2013
  2. VICODIN [Concomitant]
     Active Substance: ACETAMINOPHEN\HYDROCODONE BITARTRATE

REACTIONS (6)
  - Pruritus [Unknown]
  - Drug dose omission [Unknown]
  - Mental impairment [Unknown]
  - Contusion [Unknown]
  - Contusion [Unknown]
  - Night sweats [Unknown]

NARRATIVE: CASE EVENT DATE: 201507
